FAERS Safety Report 6932392-3 (Version None)
Quarter: 2010Q3

REPORT INFORMATION
  Report Type: 
  Country: None (occurrence: None)
  Receive Date: 20100819
  Receipt Date: 20100513
  Transmission Date: 20110219
  Serious: No
  Sender: FDA-Public Use
  Company Number: US-BAYER-201021045NA

PATIENT
  Age: 26 Year
  Sex: Female

DRUGS (1)
  1. MIRENA [Suspect]
     Indication: INTRA-UTERINE CONTRACEPTIVE DEVICE
     Dosage: FREQUENCY: CONTINUOUS, INSERTED IN DEC-2009 OR IN JAN-2010
     Route: 015

REACTIONS (5)
  - HEADACHE [None]
  - NAUSEA [None]
  - POST PROCEDURAL HAEMORRHAGE [None]
  - PREGNANCY WITH CONTRACEPTIVE DEVICE [None]
  - VOMITING IN PREGNANCY [None]
